FAERS Safety Report 4299142-3 (Version None)
Quarter: 2004Q1

REPORT INFORMATION
  Report Type: 
  Country: None (occurrence: None)
  Receive Date: 20040217
  Receipt Date: 20030814
  Transmission Date: 20041129
  Serious: Yes (Death, Hospitalization)
  Sender: FDA-Public Use
  Company Number: US041324

PATIENT
  Age: 57 Year
  Sex: Male
  Weight: 88.2 kg

DRUGS (1)
  1. ETANERCEPT [Suspect]
     Indication: GRAFT VERSUS HOST DISEASE
     Dates: start: 20030418, end: 20030606

REACTIONS (6)
  - CEREBRAL HAEMORRHAGE [None]
  - CEREBROVASCULAR ACCIDENT [None]
  - COMA [None]
  - MYCOTIC ANEURYSM [None]
  - THROMBOCYTOPENIA [None]
  - ZYGOMYCOSIS [None]
